FAERS Safety Report 5934533-3 (Version None)
Quarter: 2008Q4

REPORT INFORMATION
  Report Type: 
  Country: None (occurrence: None)
  Receive Date: 20081029
  Receipt Date: 20081022
  Transmission Date: 20090506
  Serious: Yes (Other)
  Sender: FDA-Public Use
  Company Number: CA-PFIZER INC-2008089450

PATIENT
  Age: 82 Year
  Sex: Male

DRUGS (1)
  1. CELEBREX [Suspect]
     Route: 048

REACTIONS (2)
  - BALANCE DISORDER [None]
  - FALL [None]
